FAERS Safety Report 4956607-6 (Version None)
Quarter: 2006Q1

REPORT INFORMATION
  Report Type: 
  Country: None (occurrence: None)
  Receive Date: 20060322
  Receipt Date: 20060309
  Transmission Date: 20060701
  Serious: Yes (Hospitalization)
  Sender: FDA-Public Use
  Company Number: T200600043

PATIENT
  Age: 60 Year
  Sex: Female

DRUGS (1)
  1. METHADONE HYDROCHLORIDE [Suspect]
     Dosage: 20 MG, BID, ORAL
     Route: 048

REACTIONS (6)
  - HYPOTENSION [None]
  - HYPOXIA [None]
  - OXYGEN SATURATION ABNORMAL [None]
  - PLEURAL EFFUSION [None]
  - PULMONARY OEDEMA [None]
  - WHITE BLOOD CELL COUNT INCREASED [None]
